FAERS Safety Report 9095188 (Version 4)
Quarter: 2013Q1

REPORT INFORMATION
  Report Type: Spontaneous
  Country: DK (occurrence: None)
  Receive Date: 20130122
  Receipt Date: 20130219
  Transmission Date: 20140127
  Serious: Yes (Other)
  Sender: FDA-Public Use
  Company Number: 1561780

PATIENT
  Sex: Female

DRUGS (11)
  1. EPIRUBICIN HYDROCHLORIDE [Suspect]
     Indication: PRODUCT USED FOR UNKNOWN INDICATION
  2. NAVELBINE [Suspect]
     Indication: PRODUCT USED FOR UNKNOWN INDICATION
  3. FLUOROURACIL [Suspect]
     Indication: PRODUCT USED FOR UNKNOWN INDICATION
  4. HERCEPTIN [Suspect]
     Indication: PRODUCT USED FOR UNKNOWN INDICATION
  5. XELODA [Suspect]
     Indication: PRODUCT USED FOR UNKNOWN INDICATION
     Dosage: 538 DAYS
     Dates: start: 20081025, end: 20100416
  6. SENDOXAN [Suspect]
  7. TAXOTERE [Suspect]
     Indication: PRODUCT USED FOR UNKNOWN INDICATION
  8. LAPATINIB [Suspect]
     Indication: PRODUCT USED FOR UNKNOWN INDICATION
  9. TAXOL [Suspect]
     Indication: PRODUCT USED FOR UNKNOWN INDICATION
  10. BONDRONAT [Suspect]
  11. NEXIUM [Concomitant]

REACTIONS (10)
  - Joint ankylosis [None]
  - Rash [None]
  - Breast cancer [None]
  - Malignant neoplasm progression [None]
  - Metastases to liver [None]
  - Metastases to lymph nodes [None]
  - Metastases to central nervous system [None]
  - Palmar-plantar erythrodysaesthesia syndrome [None]
  - Dermatitis [None]
  - Metastases to bone [None]
